FAERS Safety Report 20949360 (Version 1)
Quarter: 2022Q2

REPORT INFORMATION
  Report Type: Other
  Country: JP (occurrence: JP)
  Receive Date: 20220613
  Receipt Date: 20220613
  Transmission Date: 20220720
  Serious: Yes (Death, Life-Threatening, Hospitalization)
  Sender: FDA-Public Use
  Company Number: JP-ROCHE-3086909

PATIENT
  Age: 78 Year
  Sex: Female
  Weight: 44 kg

DRUGS (6)
  1. XELODA [Suspect]
     Active Substance: CAPECITABINE
     Indication: Colon cancer
     Route: 048
     Dates: start: 20170808, end: 20171207
  2. TEGAFUR [Concomitant]
     Active Substance: TEGAFUR
  3. GIMERACIL [Concomitant]
     Active Substance: GIMERACIL
  4. OTERACIL POTASSIUM [Concomitant]
     Active Substance: OTERACIL POTASSIUM
  5. WARFARIN [Concomitant]
     Active Substance: WARFARIN
  6. HEPARIN [Concomitant]
     Active Substance: HEPARIN SODIUM

REACTIONS (3)
  - Metastases to ovary [Fatal]
  - Vena cava thrombosis [Recovered/Resolved]
  - Off label use [Unknown]

NARRATIVE: CASE EVENT DATE: 20171207
